FAERS Safety Report 5654681-5 (Version None)
Quarter: 2008Q1

REPORT INFORMATION
  Report Type: 
  Country: None (occurrence: None)
  Receive Date: 20080307
  Receipt Date: 20080307
  Transmission Date: 20080703
  Serious: Yes (Death)
  Sender: FDA-Public Use
  Company Number: None

PATIENT
  Age: 84 Year
  Sex: Female
  Weight: 72.5755 kg

DRUGS (1)
  1. HEPARIN [Suspect]

REACTIONS (1)
  - DRUG HYPERSENSITIVITY [None]
